FAERS Safety Report 4703913-6 (Version None)
Quarter: 2005Q2

REPORT INFORMATION
  Report Type: 
  Country: None (occurrence: None)
  Receive Date: 20050629
  Receipt Date: 20050629
  Transmission Date: 20051028
  Serious: Yes (Hospitalization)
  Sender: FDA-Public Use
  Company Number: None

PATIENT
  Age: 66 Year
  Sex: Female
  Weight: 115 kg

DRUGS (2)
  1. NAPROXEN [Suspect]
     Indication: BACK PAIN
     Dosage: 400 MG   EVERY 4 HOURS   ORAL
     Route: 048
     Dates: start: 20050515, end: 20050531
  2. IBUPROFEN [Suspect]
     Dosage: 400 MG   EVERY 4HOURS   ORAL
     Route: 048
     Dates: start: 20050531, end: 20050531

REACTIONS (6)
  - ASTHENIA [None]
  - DUODENAL ULCER [None]
  - FATIGUE [None]
  - HAEMATOCHEZIA [None]
  - HYPERHIDROSIS [None]
  - SELF-MEDICATION [None]
